FAERS Safety Report 10350825 (Version 1)
Quarter: 2014Q3

REPORT INFORMATION
  Report Type: Spontaneous
  Country: US (occurrence: None)
  Receive Date: 20140728
  Receipt Date: 20140728
  Transmission Date: 20150326
  Serious: No
  Sender: FDA-Public Use
  Company Number: None

PATIENT
  Age: 82 Year
  Sex: Female
  Weight: 61.24 kg

DRUGS (1)
  1. EQUATE STOOL SOFTENER [Suspect]
     Active Substance: CASANTHRANOL\DOCUSATE SODIUM
     Indication: CONSTIPATION
     Dosage: 2 PILLS ONCE DAILY TAKEN BY MOUTH
     Route: 048
     Dates: start: 20140601, end: 20140721

REACTIONS (3)
  - Diarrhoea [None]
  - Product label issue [None]
  - Defaecation urgency [None]

NARRATIVE: CASE EVENT DATE: 20140721
